FAERS Safety Report 7749999-6 (Version None)
Quarter: 2011Q3

REPORT INFORMATION
  Report Type: 
  Country: None (occurrence: None)
  Receive Date: 20110912
  Receipt Date: 20110902
  Transmission Date: 20111222
  Serious: Yes (Other)
  Sender: FDA-Public Use
  Company Number: 2011SP041747

PATIENT

DRUGS (1)
  1. MIRTAZAPINE [Suspect]
     Indication: SCHIZOPHRENIA
     Dosage: 30 MG

REACTIONS (3)
  - AGITATION [None]
  - ANXIETY [None]
  - AGGRESSION [None]
